FAERS Safety Report 6996574-7 (Version None)
Quarter: 2010Q3

REPORT INFORMATION
  Report Type: 
  Country: None (occurrence: None)
  Receive Date: 20100918
  Receipt Date: 20090526
  Transmission Date: 20110219
  Serious: Yes (Hospitalization, Other)
  Sender: FDA-Public Use
  Company Number: US-WYE-H08693509

PATIENT
  Sex: Female

DRUGS (5)
  1. PREMPHASE 14/14 [Suspect]
  2. PROVERA [Suspect]
  3. VAGIFEM [Suspect]
  4. PREMARIN [Suspect]
  5. MEDROXYPROGESTERONE [Suspect]

REACTIONS (1)
  - DEEP VEIN THROMBOSIS [None]
